FAERS Safety Report 16331781 (Version 1)
Quarter: 2019Q2

REPORT INFORMATION
  Report Type: Spontaneous
  Country: US (occurrence: US)
  Receive Date: 20190412
  Receipt Date: 20190412
  Transmission Date: 20190711
  Serious: No
  Sender: FDA-Public Use
  Company Number: None

PATIENT
  Age: 60 Year
  Sex: Male

DRUGS (1)
  1. VANCOMYCIN HCL 1 GM FRESENIUS KABI USA [Suspect]
     Active Substance: VANCOMYCIN HYDROCHLORIDE
     Indication: OSTEOMYELITIS
     Route: 042
     Dates: start: 20180828

REACTIONS (2)
  - Oedema peripheral [None]
  - Laboratory test abnormal [None]

NARRATIVE: CASE EVENT DATE: 20190404
